FAERS Safety Report 25043106 (Version 2)
Quarter: 2025Q1

REPORT INFORMATION
  Report Type: Report from Study
  Country: US (occurrence: US)
  Receive Date: 20250305
  Receipt Date: 20250325
  Transmission Date: 20250409
  Serious: Yes (Hospitalization, Other)
  Sender: ABBVIE
  Company Number: US-ABBVIE-6155724

PATIENT
  Age: 73 Year
  Sex: Male

DRUGS (1)
  1. HUMIRA [Suspect]
     Active Substance: ADALIMUMAB
     Indication: Colitis ulcerative
     Dosage: STRENGTH 40MG
     Route: 058
     Dates: start: 20151106, end: 202411

REACTIONS (17)
  - Aspiration [Recovering/Resolving]
  - Fall [Recovered/Resolved]
  - Haemoglobin decreased [Recovering/Resolving]
  - Multiple fractures [Unknown]
  - Nerve injury [Unknown]
  - Pneumonia staphylococcal [Recovered/Resolved]
  - Hip fracture [Recovered/Resolved]
  - Musculoskeletal disorder [Recovering/Resolving]
  - Pelvic fracture [Recovering/Resolving]
  - COVID-19 [Recovered/Resolved]
  - Staphylococcal infection [Recovering/Resolving]
  - Renal disorder [Not Recovered/Not Resolved]
  - Urinary tract infection [Not Recovered/Not Resolved]
  - Enterococcal infection [Not Recovered/Not Resolved]
  - Gastric cancer [Recovered/Resolved]
  - Rib fracture [Not Recovered/Not Resolved]
  - Hip fracture [Recovered/Resolved]

NARRATIVE: CASE EVENT DATE: 20200701
